FAERS Safety Report 17977617 (Version 6)
Quarter: 2020Q4

REPORT INFORMATION
  Report Type: Spontaneous
  Country: JP (occurrence: JP)
  Receive Date: 20200703
  Receipt Date: 20201027
  Transmission Date: 20210113
  Serious: Yes (Disabling, Other)
  Sender: FDA-Public Use
  Company Number: NVSJ2020JP006299

PATIENT
  Age: 86 Year
  Sex: Male

DRUGS (1)
  1. BEOVU [Suspect]
     Active Substance: BROLUCIZUMAB-DBLL
     Indication: AGE-RELATED MACULAR DEGENERATION
     Dosage: 6 MG
     Route: 031
     Dates: start: 20200603, end: 20200603

REACTIONS (12)
  - Retinal vasculitis [Recovering/Resolving]
  - Vitreous opacities [Recovering/Resolving]
  - Retinal artery occlusion [Recovered/Resolved with Sequelae]
  - Uveitis [Recovering/Resolving]
  - Keratic precipitates [Recovering/Resolving]
  - Concomitant disease aggravated [Recovering/Resolving]
  - Anterior chamber cell [Unknown]
  - Vitreal cells [Unknown]
  - Eye inflammation [Recovering/Resolving]
  - Retinal perivascular sheathing [Unknown]
  - Blindness transient [Recovering/Resolving]
  - Retinal haemorrhage [Unknown]

NARRATIVE: CASE EVENT DATE: 20200616
